FAERS Safety Report 18576581 (Version 2)
Quarter: 2021Q2

REPORT INFORMATION
  Report Type: Spontaneous
  Country: US (occurrence: US)
  Receive Date: 20201203
  Receipt Date: 20210625
  Transmission Date: 20210717
  Serious: Yes (Hospitalization, Other)
  Sender: FDA-Public Use
  Company Number: US-TAKEDA-2020TUS055056

PATIENT

DRUGS (18)
  1. PREVACID [Suspect]
     Active Substance: LANSOPRAZOLE
     Dosage: UNK UNK, QD
     Route: 048
     Dates: start: 1995, end: 2017
  2. NEXIUM [Suspect]
     Active Substance: ESOMEPRAZOLE MAGNESIUM
     Dosage: UNK UNK, QD
     Route: 048
     Dates: start: 2001, end: 2017
  3. PREVACID 24 HR [Suspect]
     Active Substance: LANSOPRAZOLE
     Dosage: UNK UNK, QD
     Route: 048
     Dates: start: 2009, end: 2017
  4. TUMS [Concomitant]
     Active Substance: CALCIUM CARBONATE
     Dosage: UNK
     Route: 048
     Dates: start: 1984
  5. PREVACID [Suspect]
     Active Substance: LANSOPRAZOLE
     Indication: DYSPEPSIA
     Dosage: UNK
     Route: 048
     Dates: start: 199504, end: 201712
  6. NEXIUM 24HR [Suspect]
     Active Substance: ESOMEPRAZOLE MAGNESIUM
     Dosage: UNK UNK, QD
     Route: 048
     Dates: start: 2014, end: 2017
  7. PREVACID 24 HR [Suspect]
     Active Substance: LANSOPRAZOLE
     Indication: DYSPEPSIA
     Dosage: UNK
     Route: 048
     Dates: start: 199504, end: 201712
  8. ATORVASTATIN [Concomitant]
     Active Substance: ATORVASTATIN
     Indication: BLOOD CHOLESTEROL INCREASED
     Dosage: UNK
  9. RANITIDINE HYDROCHLORIDE. [Concomitant]
     Active Substance: RANITIDINE HYDROCHLORIDE
  10. TORSEMIDE. [Concomitant]
     Active Substance: TORSEMIDE
     Indication: RENAL DISORDER
     Dosage: UNK
  11. FAMOTIDINE. [Concomitant]
     Active Substance: FAMOTIDINE
  12. RANITIDINE. [Concomitant]
     Active Substance: RANITIDINE
  13. NEXIUM [Suspect]
     Active Substance: ESOMEPRAZOLE MAGNESIUM
     Indication: DYSPEPSIA
     Dosage: UNK
     Route: 048
     Dates: start: 199504, end: 201712
  14. NEXIUM 24HR [Suspect]
     Active Substance: ESOMEPRAZOLE MAGNESIUM
     Indication: DYSPEPSIA
     Dosage: UNK
     Route: 048
     Dates: start: 199504, end: 201712
  15. OMEPRAZOLE. [Suspect]
     Active Substance: OMEPRAZOLE
     Indication: DYSPEPSIA
     Dosage: UNK
     Route: 048
     Dates: start: 199504, end: 201712
  16. OMEPRAZOLE. [Suspect]
     Active Substance: OMEPRAZOLE
     Dosage: UNK UNK, QD
     Route: 048
     Dates: start: 2010
  17. LOSARTAN. [Concomitant]
     Active Substance: LOSARTAN
     Indication: HYPERTENSION
     Dosage: UNK
  18. CIMETIDINE [Concomitant]
     Active Substance: CIMETIDINE

REACTIONS (4)
  - Chronic kidney disease [Not Recovered/Not Resolved]
  - Dyspepsia [Not Recovered/Not Resolved]
  - Acute kidney injury [Not Recovered/Not Resolved]
  - End stage renal disease [Not Recovered/Not Resolved]

NARRATIVE: CASE EVENT DATE: 2017
